FAERS Safety Report 4956373-4 (Version None)
Quarter: 2006Q1

REPORT INFORMATION
  Report Type: 
  Country: None (occurrence: None)
  Receive Date: 20060323
  Receipt Date: 20060316
  Transmission Date: 20060701
  Serious: Yes (Hospitalization)
  Sender: FDA-Public Use
  Company Number: 2006037500

PATIENT
  Age: 56 Year
  Sex: Male

DRUGS (1)
  1. ZOLOFT [Suspect]
     Indication: DEPRESSION
     Dosage: 500 MG, ORAL
     Route: 048
     Dates: start: 20060301, end: 20060316

REACTIONS (1)
  - OVERDOSE [None]
